FAERS Safety Report 7514429-6 (Version None)
Quarter: 2011Q2

REPORT INFORMATION
  Report Type: 
  Country: None (occurrence: None)
  Receive Date: 20110601
  Receipt Date: 20110519
  Transmission Date: 20111010
  Serious: Yes (Other)
  Sender: FDA-Public Use
  Company Number: US-JNJFOC-20110509328

PATIENT
  Age: 64 Year
  Sex: Female
  Weight: 56.25 kg

DRUGS (26)
  1. FENTANYL-100 [Suspect]
     Route: 062
     Dates: start: 20070101
  2. FENTANYL-100 [Suspect]
     Indication: FIBROMYALGIA
     Route: 062
     Dates: end: 20110502
  3. FENTANYL-100 [Suspect]
     Indication: SPINAL COLUMN STENOSIS
     Route: 062
     Dates: end: 20110502
  4. CHANTIX [Suspect]
     Route: 048
     Dates: start: 20110513
  5. FENTANYL-100 [Suspect]
     Route: 062
     Dates: start: 20070101
  6. FENTANYL-100 [Suspect]
     Route: 062
     Dates: start: 20070101, end: 20110501
  7. LASIX [Concomitant]
     Indication: PRODUCT USED FOR UNKNOWN INDICATION
     Dosage: EVERY OTHER DAY AS A WATER PILL
     Route: 065
  8. FENTANYL-100 [Suspect]
     Route: 062
     Dates: start: 20070101, end: 20110501
  9. FENTANYL-100 [Suspect]
     Indication: PAIN
     Route: 062
     Dates: start: 20070101
  10. FENTANYL-100 [Suspect]
     Route: 062
     Dates: end: 20110502
  11. FENTANYL-100 [Suspect]
     Route: 062
     Dates: start: 20070101, end: 20110501
  12. FENTANYL-100 [Suspect]
     Route: 062
     Dates: start: 20070101, end: 20110501
  13. CHANTIX [Suspect]
     Indication: SMOKING CESSATION THERAPY
     Route: 048
     Dates: start: 20070101, end: 20080101
  14. LISINOPRIL [Concomitant]
     Indication: BLOOD PRESSURE
     Route: 065
  15. HYDROCHLOROTHIAZIDE [Concomitant]
     Indication: BLOOD PRESSURE
     Route: 065
  16. CHANTIX [Suspect]
     Route: 048
     Dates: start: 20110301, end: 20110401
  17. XANAX [Suspect]
     Indication: DEPRESSION
     Dosage: 1 MG, ONE AND A HALF TABLET AS NEEDED
     Route: 048
     Dates: end: 20110512
  18. VICODIN [Concomitant]
     Indication: PAIN
     Dosage: AS NEEDED
     Route: 065
  19. ATENOLOL [Concomitant]
     Indication: BLOOD PRESSURE
     Route: 065
  20. CYMBALTA [Concomitant]
     Indication: PAIN
     Route: 065
  21. SPIRIVA [Concomitant]
     Indication: PRODUCT USED FOR UNKNOWN INDICATION
     Route: 065
  22. FENTANYL-100 [Suspect]
     Route: 062
     Dates: start: 20070101
  23. CYMBALTA [Concomitant]
     Indication: FIBROMYALGIA
     Route: 065
  24. NORVASC [Concomitant]
     Indication: BLOOD PRESSURE
     Route: 065
  25. FENTANYL-100 [Suspect]
     Indication: INTERVERTEBRAL DISC DEGENERATION
     Route: 062
     Dates: end: 20110502
  26. XANAX [Suspect]
     Indication: ANXIETY
     Dosage: 1 MG, ONE AND A HALF TABLET AS NEEDED
     Route: 048
     Dates: end: 20110512

REACTIONS (13)
  - STOMATITIS [None]
  - TREMOR [None]
  - SKIN BURNING SENSATION [None]
  - FATIGUE [None]
  - HYPERSOMNIA [None]
  - PALPITATIONS [None]
  - CHEST PAIN [None]
  - SWOLLEN TONGUE [None]
  - HYPERSENSITIVITY [None]
  - WITHDRAWAL SYNDROME [None]
  - HEADACHE [None]
  - DRUG INTOLERANCE [None]
  - ASTHENIA [None]
